FAERS Safety Report 10417595 (Version 7)
Quarter: 2019Q2

REPORT INFORMATION
  Report Type: Spontaneous
  Country: JP (occurrence: JP)
  Receive Date: 20140829
  Receipt Date: 20190605
  Transmission Date: 20190711
  Serious: Yes (Death, Life-Threatening, Hospitalization, Other)
  Sender: FDA-Public Use
  Company Number: JP-009507513-1408JPN016168

PATIENT
  Age: 70 Year
  Sex: Male
  Weight: 40 kg

DRUGS (5)
  1. PYRAZINAMIDE. [Suspect]
     Active Substance: PYRAZINAMIDE
     Indication: PULMONARY TUBERCULOSIS
  2. TEMODAL [Suspect]
     Active Substance: TEMOZOLOMIDE
     Dosage: 150 MG/M2, QD
     Route: 048
     Dates: start: 20140131, end: 20140204
  3. TEMODAL [Suspect]
     Active Substance: TEMOZOLOMIDE
     Indication: GLIOBLASTOMA MULTIFORME
     Dosage: 75 MG/M2, QD
     Route: 048
     Dates: start: 20131105
  4. TEMODAL [Suspect]
     Active Substance: TEMOZOLOMIDE
     Dosage: 150 MG/M2, QD
     Route: 048
     Dates: start: 20140328, end: 20140401
  5. TEMODAL [Suspect]
     Active Substance: TEMOZOLOMIDE
     Dosage: 150 MG/M2, QD
     Route: 048
     Dates: start: 20140228, end: 20140304

REACTIONS (7)
  - Sepsis [Fatal]
  - Altered state of consciousness [Unknown]
  - Stevens-Johnson syndrome [Fatal]
  - Platelet count decreased [Not Recovered/Not Resolved]
  - Pulmonary tuberculosis [Fatal]
  - Bone marrow failure [Unknown]
  - Lymphocyte count decreased [Recovering/Resolving]

NARRATIVE: CASE EVENT DATE: 20140411
